FAERS Safety Report 9704325 (Version 1)
Quarter: 2013Q4

REPORT INFORMATION
  Report Type: Spontaneous
  Country: US (occurrence: US)
  Receive Date: 20131122
  Receipt Date: 20131122
  Transmission Date: 20140711
  Serious: Yes (Other)
  Sender: FDA-Public Use
  Company Number: US-ALLERGAN-1318167US

PATIENT
  Age: 62 Year
  Sex: Female

DRUGS (4)
  1. BOTOX [Suspect]
     Indication: MUSCLE SPASTICITY
     Dosage: 50 UNITS, SINGLE
     Route: 030
  2. AMANTADINE [Concomitant]
     Indication: PARKINSON^S DISEASE
  3. CARBIDOPA-LEVODOPA-B [Concomitant]
     Indication: PARKINSON^S DISEASE
  4. PRAMIPEXOLE [Concomitant]
     Indication: PARKINSON^S DISEASE

REACTIONS (1)
  - Dystonia [Unknown]
